FAERS Safety Report 9098820 (Version 1)
Quarter: 2013Q1

REPORT INFORMATION
  Report Type: Spontaneous
  Country: US (occurrence: US)
  Receive Date: 20130206
  Receipt Date: 20130206
  Transmission Date: 20140127
  Serious: No
  Sender: FDA-Public Use
  Company Number: US-GLAXOSMITHKLINE-A1008382A

PATIENT
  Age: 52 Year
  Sex: Female

DRUGS (2)
  1. VELTIN [Suspect]
     Indication: ACNE
     Route: 061
     Dates: start: 201212, end: 201212
  2. NO CONCURRENT MEDICATION [Concomitant]

REACTIONS (1)
  - Thermal burn [Recovering/Resolving]
